FAERS Safety Report 25611482 (Version 1)
Quarter: 2025Q3

REPORT INFORMATION
  Report Type: Spontaneous
  Country: US (occurrence: US)
  Receive Date: 20250728
  Receipt Date: 20250728
  Transmission Date: 20251021
  Serious: No
  Sender: CIPLA
  Company Number: US-CIPLA LTD.-2025US09257

PATIENT

DRUGS (3)
  1. LENALIDOMIDE [Suspect]
     Active Substance: LENALIDOMIDE
     Indication: Plasma cell myeloma
     Dosage: 25 MILLIGRAM, QD (ONCE DAILY VIA MOUTH FOR 14 DAYS ON AND 14 DAYS OFF OF EACH 28 DAYS)
     Route: 048
     Dates: start: 202506
  2. LENALIDOMIDE [Suspect]
     Active Substance: LENALIDOMIDE
     Dosage: 25 MILLIGRAM, QD (ONCE DAILY VIA MOUTH FOR 14 DAYS ON AND 14 DAYS OFF OF EACH 28 DAYS)
     Route: 048
     Dates: start: 20250619
  3. LENALIDOMIDE [Concomitant]
     Active Substance: LENALIDOMIDE
     Indication: Plasma cell myeloma
     Dosage: 25 MILLIGRAM, QD (ONCE DAILY VIA MOUTH FOR 14 DAYS ON AND 14 DAYS OFF OF EACH 28 DAYS)
     Route: 048
     Dates: start: 2025

REACTIONS (1)
  - Pruritus [Recovering/Resolving]

NARRATIVE: CASE EVENT DATE: 20250619
